FAERS Safety Report 7392899-4 (Version None)
Quarter: 2011Q2

REPORT INFORMATION
  Report Type: 
  Country: None (occurrence: None)
  Receive Date: 20110404
  Receipt Date: 20110309
  Transmission Date: 20111010
  Serious: No
  Sender: FDA-Public Use
  Company Number: US-B.I. PHARMACEUTICALS,INC./RIDGEFIELD-2011-BP-07494BP

PATIENT
  Sex: Male

DRUGS (1)
  1. PRADAXA [Suspect]
     Indication: ATRIAL FIBRILLATION
     Dosage: 300 MG
     Route: 048
     Dates: start: 20110209

REACTIONS (6)
  - DIARRHOEA [None]
  - LETHARGY [None]
  - VISION BLURRED [None]
  - FLATULENCE [None]
  - DYSPEPSIA [None]
  - BALANCE DISORDER [None]
